FAERS Safety Report 9644792 (Version 2)
Quarter: 2013Q4

REPORT INFORMATION
  Report Type: Spontaneous
  Country: US (occurrence: US)
  Receive Date: 20131025
  Receipt Date: 20131025
  Transmission Date: 20140711
  Serious: No
  Sender: FDA-Public Use
  Company Number: US-PFIZER INC-2013300385

PATIENT
  Age: 68 Year
  Sex: Male
  Weight: 61.22 kg

DRUGS (3)
  1. VIAGRA [Suspect]
     Indication: ERECTILE DYSFUNCTION
     Dosage: 50 MG, AS NEEDED
     Route: 048
     Dates: start: 20131017, end: 20131017
  2. DOXAZOSIN MESILATE [Interacting]
     Indication: HYPERTENSION
     Dosage: 4 MG, 1X/DAY
     Route: 048
  3. ATENOLOL [Concomitant]
     Indication: HYPERTENSION
     Dosage: 100 MG, 1X/DAY

REACTIONS (2)
  - Drug ineffective [Unknown]
  - Drug interaction [Unknown]
